FAERS Safety Report 12289409 (Version 1)
Quarter: 2016Q2

REPORT INFORMATION
  Report Type: Spontaneous
  Country: US (occurrence: US)
  Receive Date: 20160421
  Receipt Date: 20160421
  Transmission Date: 20160815
  Serious: No
  Sender: FDA-Public Use
  Company Number: US-TEVA-565907USA

PATIENT
  Sex: Female

DRUGS (1)
  1. AVIANE [Suspect]
     Active Substance: ETHINYL ESTRADIOL\LEVONORGESTREL
     Route: 065

REACTIONS (8)
  - Fatigue [Unknown]
  - Depression [Unknown]
  - Hyperhidrosis [Unknown]
  - Abdominal pain [Unknown]
  - Product substitution issue [Unknown]
  - Rash [Unknown]
  - Headache [Unknown]
  - Rash macular [Unknown]
